FAERS Safety Report 5969055-7 (Version None)
Quarter: 2008Q4

REPORT INFORMATION
  Report Type: 
  Country: None (occurrence: None)
  Receive Date: 20081126
  Receipt Date: 20081119
  Transmission Date: 20090506
  Serious: Yes (Hospitalization)
  Sender: FDA-Public Use
  Company Number: US-ABBOTT-08P-163-0489073-00

PATIENT
  Age: 49 Year
  Sex: Female

DRUGS (4)
  1. SYNTHROID [Suspect]
     Indication: HYPOTHYROIDISM
     Route: 048
     Dates: start: 19890101, end: 20020101
  2. SYNTHROID [Suspect]
     Route: 048
     Dates: start: 20050101, end: 20080101
  3. ZOLPIDEM TARTRATE [Suspect]
     Indication: DRUG USE FOR UNKNOWN INDICATION
     Route: 048
     Dates: start: 19920101, end: 20020101
  4. CHLORPROMAZINE [Suspect]
     Indication: DRUG USE FOR UNKNOWN INDICATION
     Dates: start: 19950101, end: 20020101

REACTIONS (12)
  - BODY TEMPERATURE DECREASED [None]
  - COMA [None]
  - CONFUSIONAL STATE [None]
  - FEELING ABNORMAL [None]
  - FEELING HOT [None]
  - FLUID RETENTION [None]
  - LOCAL SWELLING [None]
  - NERVOUSNESS [None]
  - PARKINSONISM [None]
  - PSYCHOMOTOR HYPERACTIVITY [None]
  - PSYCHOTIC DISORDER [None]
  - WEIGHT INCREASED [None]
